FAERS Safety Report 23071239 (Version 3)
Quarter: 2023Q4

REPORT INFORMATION
  Report Type: Spontaneous
  Country: JP (occurrence: JP)
  Receive Date: 20231016
  Receipt Date: 20231204
  Transmission Date: 20240109
  Serious: Yes (Hospitalization, Other)
  Sender: FDA-Public Use
  Company Number: None

PATIENT

DRUGS (38)
  1. NUCALA [Suspect]
     Active Substance: MEPOLIZUMAB
     Indication: Asthma
     Dosage: 100 MG, Q4W
     Route: 058
     Dates: start: 20221005, end: 2023
  2. NUCALA [Suspect]
     Active Substance: MEPOLIZUMAB
     Dosage: 100 MG, Q4W
     Route: 058
     Dates: start: 20230906
  3. PREDNISOLONE [Suspect]
     Active Substance: PREDNISOLONE
     Indication: Asthma
     Dosage: 7 MG, QD
     Route: 048
     Dates: start: 2012
  4. PREDNISOLONE [Suspect]
     Active Substance: PREDNISOLONE
     Indication: Rheumatoid arthritis
     Dosage: 3 MG, BID AFTER BREAKFAST AND DINNER
     Route: 048
     Dates: start: 20230906
  5. RINVOQ [Suspect]
     Active Substance: UPADACITINIB
     Indication: Asthma
     Dosage: 15 MG, 1D AFTER BREAKFAST
     Route: 048
     Dates: start: 20230705, end: 20230818
  6. RINVOQ [Suspect]
     Active Substance: UPADACITINIB
     Indication: Rheumatoid arthritis
     Dosage: 15 MG, 1D
     Route: 048
     Dates: start: 20230906
  7. BROMHEXINE HYDROCHLORIDE [Concomitant]
     Active Substance: BROMHEXINE HYDROCHLORIDE
     Dosage: 2 ML, TID
     Route: 055
  8. ISOTONIC SODIUM CHLORIDE SOLUTION [Concomitant]
     Active Substance: SODIUM CHLORIDE
     Dosage: 3 ML, TID
     Route: 055
  9. SPIRIVA RESPIMAT [Concomitant]
     Active Substance: TIOTROPIUM BROMIDE
     Dosage: 2.5 ?G, 1D
     Route: 055
  10. KETOPROFEN [Concomitant]
     Active Substance: KETOPROFEN
     Dosage: 3DF PER DAY, ON THE AFFECTED AREA (ON THE WRIST, ELBOW, HIP)
     Route: 061
  11. TSUKUSHI AM [Concomitant]
     Dosage: UNK, PRN
  12. SYMBICORT [Concomitant]
     Active Substance: BUDESONIDE\FORMOTEROL FUMARATE DIHYDRATE
     Dosage: 2 DF, BID
     Route: 055
  13. ETIZOLAM [Concomitant]
     Active Substance: ETIZOLAM
     Dosage: 0.5 MG, BID AFTER BREAKFAST AND DINNER
  14. ALCOHOL [Concomitant]
     Active Substance: ALCOHOL
     Dosage: 1 DF, 1D
  15. NOVORAPID [Concomitant]
     Active Substance: INSULIN ASPART
     Dosage: 2 IU, ONCE A DAY JUST BEFORE THE BREAKFAST
  16. NEXIUM [Concomitant]
     Active Substance: ESOMEPRAZOLE MAGNESIUM
     Dosage: 20 MG, 1D AFTER DINNER
  17. ENTRESTO [Concomitant]
     Active Substance: SACUBITRIL\VALSARTAN
     Dosage: 200 MG, 1D AFTER BREAKFAST
  18. IPRAGLIFLOZIN L-PROLINE\SITAGLIPTIN PHOSPHATE [Concomitant]
     Active Substance: IPRAGLIFLOZIN L-PROLINE\SITAGLIPTIN PHOSPHATE
     Dosage: 1 DF, 1D AFTER BREAKFAST
  19. MONTELUKAST SODIUM [Concomitant]
     Active Substance: MONTELUKAST SODIUM
     Dosage: 10 MG, 1D BEFORE BEDTIME
  20. MIYA-BM [Concomitant]
     Active Substance: CLOSTRIDIUM BUTYRICUM SPORES STRAIN M-55
     Dosage: 1 DF, TID AFTER EVERY MEALS
  21. TIZANIDINE HYDROCHLORIDE [Concomitant]
     Active Substance: TIZANIDINE HYDROCHLORIDE
     Dosage: 1 MG, TID AFTER BREAKFAST, LUNCH AND BEFORE BEDTIME
  22. SALAGEN [Concomitant]
     Active Substance: PILOCARPINE HYDROCHLORIDE
     Dosage: 5 MG, TID AFTER EVERY MEALS
  23. CARBOCYSTEINE [Concomitant]
     Active Substance: CARBOCYSTEINE
     Dosage: 500 MG, TID AFTER EVERY MEALS
  24. LOXOPROFEN SODIUM [Concomitant]
     Active Substance: LOXOPROFEN SODIUM
     Dosage: 60 MG, TID AFTER EVERY MEALS
  25. SUPLATAST TOSILATE [Concomitant]
     Active Substance: SUPLATAST TOSILATE
     Dosage: 100 MG, TID AFTER EVERY MEALS
  26. PREGABALIN [Concomitant]
     Active Substance: PREGABALIN
     Dosage: 50MG AFTER BREAKFAST AND LUNCH, 75MG BEFORE BEDTIME
  27. DROXIDOPA [Concomitant]
     Active Substance: DROXIDOPA
     Dosage: 100 MG, 1D AFTER BREAKFAST
  28. AMBROXOL HYDROCHLORIDE [Concomitant]
     Active Substance: AMBROXOL HYDROCHLORIDE
     Dosage: 45 MG, 1D AFTER DINNER
  29. FEXOFENADINE HYDROCHLORIDE [Concomitant]
     Active Substance: FEXOFENADINE HYDROCHLORIDE
     Dosage: 60 MG, BID AFTER BREAKFAST AND DINNER
  30. LEVOCETIRIZINE HYDROCHLORIDE [Concomitant]
     Active Substance: LEVOCETIRIZINE HYDROCHLORIDE
     Dosage: 10 MG, 1D BEFORE BEDTIME
  31. METGLUCO [Concomitant]
     Active Substance: METFORMIN HYDROCHLORIDE
     Dosage: 250 MG, BID AFTER BREAKFAST AND DINNER
  32. HERBALS [Concomitant]
     Active Substance: HERBALS
     Dosage: 2.5 G, TID BEFORE EVERY MEALS
  33. LOMERIZINE HYDROCHLORIDE [Concomitant]
     Active Substance: LOMERIZINE HYDROCHLORIDE
     Dosage: 5 MG, BID AFTER BREAKFAST AND DINNER
  34. Travelmin [Concomitant]
     Dosage: 1 DF, PRN
  35. ZADITEN [Concomitant]
     Active Substance: KETOTIFEN FUMARATE
     Dosage: AS INSTRUCTED BY THE PHYSICIAN
  36. Glycyron [Concomitant]
     Dosage: 1 DF, BID AFTER BREAKFAST AND DINNER
  37. DIETARY SUPPLEMENT\PROBIOTICS [Concomitant]
     Active Substance: DIETARY SUPPLEMENT\PROBIOTICS NOS
     Dosage: 1 G, TID AFTER EVERY MEALS
  38. MAGNESIUM OXIDE [Concomitant]
     Active Substance: MAGNESIUM OXIDE
     Dosage: 500 MG, BID AFTER BREAKFAST AND DINNER

REACTIONS (3)
  - Enterocolitis [Recovered/Resolved]
  - Infection susceptibility increased [Recovered/Resolved]
  - Gastroenteritis [Recovered/Resolved]

NARRATIVE: CASE EVENT DATE: 20230818
